FAERS Safety Report 9787690 (Version 1)
Quarter: 2013Q4

REPORT INFORMATION
  Report Type: Spontaneous
  Country: CH (occurrence: CH)
  Receive Date: 20131230
  Receipt Date: 20131230
  Transmission Date: 20140711
  Serious: Yes (Hospitalization)
  Sender: FDA-Public Use
  Company Number: CH-JNJFOC-20131214512

PATIENT
  Age: 62 Year
  Sex: Male
  Weight: 87 kg

DRUGS (11)
  1. XARELTO [Suspect]
     Indication: EMBOLISM VENOUS
     Route: 048
     Dates: start: 20131106, end: 20131112
  2. DILZEM [Interacting]
     Indication: PRODUCT USED FOR UNKNOWN INDICATION
     Route: 048
  3. TRIATEC [Concomitant]
     Route: 048
  4. VI-DE 3 [Concomitant]
     Route: 048
  5. PRAVASTATIN SODIUM [Concomitant]
     Route: 048
  6. CALCIMAGON-D 3 [Concomitant]
     Route: 048
  7. LASIX [Concomitant]
     Route: 048
  8. MAGNESIOCARD [Concomitant]
     Route: 048
  9. ATACAND [Concomitant]
     Route: 048
  10. NEBILET [Concomitant]
     Route: 048
  11. METOLAZONE [Concomitant]
     Route: 048

REACTIONS (2)
  - Drug interaction [Recovered/Resolved]
  - Drug level increased [Recovered/Resolved]
